FAERS Safety Report 14692271 (Version 13)
Quarter: 2025Q2

REPORT INFORMATION
  Report Type: Report from Study
  Country: US (occurrence: US)
  Receive Date: 20180329
  Receipt Date: 20250611
  Transmission Date: 20250717
  Serious: Yes (Other)
  Sender: ROCHE
  Company Number: US-ROCHE-2058394

PATIENT
  Age: 64 Year
  Sex: Female

DRUGS (8)
  1. ALECENSA [Suspect]
     Active Substance: ALECTINIB HYDROCHLORIDE
     Indication: Lung neoplasm malignant
     Route: 048
     Dates: start: 201710, end: 20180116
  2. ALECENSA [Suspect]
     Active Substance: ALECTINIB HYDROCHLORIDE
     Indication: Lung neoplasm malignant
     Route: 048
     Dates: start: 20171009
  3. ALECENSA [Suspect]
     Active Substance: ALECTINIB HYDROCHLORIDE
     Route: 048
     Dates: start: 20171008
  4. ALECENSA [Suspect]
     Active Substance: ALECTINIB HYDROCHLORIDE
     Dosage: TAKE 2 CAPSULE(S) BY MOUTH TWICE A DAY WITH FOOD.
     Route: 048
  5. ALECENSA [Suspect]
     Active Substance: ALECTINIB HYDROCHLORIDE
     Route: 048
  6. ALECENSA [Suspect]
     Active Substance: ALECTINIB HYDROCHLORIDE
     Route: 048
  7. ALECENSA [Suspect]
     Active Substance: ALECTINIB HYDROCHLORIDE
     Route: 048
  8. MOTRIN [Concomitant]
     Active Substance: IBUPROFEN

REACTIONS (16)
  - Jaundice [Unknown]
  - Renal impairment [Recovered/Resolved]
  - Blood bilirubin increased [Unknown]
  - Lung disorder [Unknown]
  - Hepatic function abnormal [Recovered/Resolved]
  - Migraine [Unknown]
  - Decreased appetite [Unknown]
  - Pain [Unknown]
  - Chills [Unknown]
  - Anaemia [Unknown]
  - Hepatic enzyme increased [Unknown]
  - Aphthous ulcer [Unknown]
  - Gastrointestinal disorder [Unknown]
  - Constipation [Unknown]
  - Urinary tract infection [Unknown]
  - Arthritis [Unknown]

NARRATIVE: CASE EVENT DATE: 20180116
